FAERS Safety Report 9371564 (Version 2)
Quarter: 2013Q2

REPORT INFORMATION
  Report Type: Report from Study
  Country: BR (occurrence: BR)
  Receive Date: 20130627
  Receipt Date: 20130628
  Transmission Date: 20140414
  Serious: Yes (Other)
  Sender: FDA-Public Use
  Company Number: BR-ROCHE-1241816

PATIENT
  Sex: Male
  Weight: 62 kg

DRUGS (4)
  1. INTERFERON ALFA-2A [Suspect]
     Indication: HEPATITIS C
     Route: 065
     Dates: start: 1995, end: 1995
  2. INTERFERON ALFA-2A [Suspect]
     Route: 065
     Dates: start: 2002, end: 2002
  3. RIBAVIRIN [Suspect]
     Indication: HEPATITIS C
     Route: 065
     Dates: start: 1995, end: 1995
  4. RIBAVIRIN [Suspect]
     Route: 065
     Dates: start: 2002, end: 2002

REACTIONS (2)
  - Hepatic lesion [Not Recovered/Not Resolved]
  - Hepatic pain [Not Recovered/Not Resolved]
